FAERS Safety Report 23823379 (Version 12)
Quarter: 2025Q1

REPORT INFORMATION
  Report Type: Report from Study
  Country: US (occurrence: US)
  Receive Date: 20240507
  Receipt Date: 20250310
  Transmission Date: 20250409
  Serious: Yes (Hospitalization, Other)
  Sender: TAKEDA
  Company Number: US-TAKEDA-2023TUS116589

PATIENT
  Sex: Male

DRUGS (1)
  1. MARIBAVIR [Suspect]
     Active Substance: MARIBAVIR
     Indication: Cytomegalovirus infection
     Dosage: 400 MILLIGRAM, BID
     Dates: start: 20231129

REACTIONS (8)
  - Cytomegalovirus infection reactivation [Unknown]
  - Lower respiratory tract infection [Unknown]
  - Pruritus [Unknown]
  - Postoperative wound infection [Unknown]
  - Adverse food reaction [Unknown]
  - Illness [Recovering/Resolving]
  - Decreased appetite [Unknown]
  - Dysgeusia [Recovered/Resolved]
